FAERS Safety Report 25370041 (Version 1)
Quarter: 2025Q2

REPORT INFORMATION
  Report Type: Spontaneous
  Country: ES (occurrence: ES)
  Receive Date: 20250528
  Receipt Date: 20250528
  Transmission Date: 20250717
  Serious: Yes (Death, Hospitalization)
  Sender: PFIZER
  Company Number: None

PATIENT
  Age: 76 Year
  Sex: Male

DRUGS (1)
  1. SUTENT [Suspect]
     Active Substance: SUNITINIB MALATE
     Indication: Gastrointestinal stromal tumour
     Dosage: 37.5 MG, DAILY
     Route: 048
     Dates: start: 20241212, end: 20250501

REACTIONS (5)
  - Acute kidney injury [Fatal]
  - Pancytopenia [Fatal]
  - Disseminated intravascular coagulation [Fatal]
  - Subdural haematoma [Fatal]
  - Vomiting [Recovering/Resolving]

NARRATIVE: CASE EVENT DATE: 20250223
